FAERS Safety Report 5678917-X (Version None)
Quarter: 2008Q1

REPORT INFORMATION
  Report Type: 
  Country: None (occurrence: None)
  Receive Date: 20080325
  Receipt Date: 20080312
  Transmission Date: 20080703
  Serious: Yes (Other)
  Sender: FDA-Public Use
  Company Number: PHHY2008CA03259

PATIENT
  Sex: Female

DRUGS (3)
  1. GLEEVEC [Suspect]
     Indication: HEPATIC NEOPLASM MALIGNANT
     Dosage: UNK, UNK
     Route: 048
  2. GLEEVEC [Suspect]
     Dosage: UNK, NO TREATMENT
  3. GLEEVEC [Suspect]
     Dates: start: 20080301

REACTIONS (2)
  - DRUG EXPOSURE DURING PREGNANCY [None]
  - PREMATURE LABOUR [None]
